FAERS Safety Report 19410307 (Version 1)
Quarter: 2021Q2

REPORT INFORMATION
  Report Type: Spontaneous
  Country: FR (occurrence: FR)
  Receive Date: 20210614
  Receipt Date: 20210614
  Transmission Date: 20210717
  Serious: Yes (Other)
  Sender: FDA-Public Use
  Company Number: FR-ORGANON-O2106FRA000989

PATIENT
  Age: 60 Year
  Sex: Male
  Weight: 73 kg

DRUGS (2)
  1. SERETIDE [Concomitant]
     Active Substance: FLUTICASONE PROPIONATE\SALMETEROL XINAFOATE
     Indication: ASTHMA
     Dosage: 500 MICROGRAM, Q12H
     Route: 055
     Dates: start: 201903
  2. CELESTENE [BETAMETHASONE] [Suspect]
     Active Substance: BETAMETHASONE
     Indication: ASTHMA
     Dosage: 20 GTT DROPS, QD
     Route: 048
     Dates: start: 202006, end: 20210527

REACTIONS (1)
  - Atypical mycobacterial infection [Unknown]

NARRATIVE: CASE EVENT DATE: 20201210
